FAERS Safety Report 20037564 (Version 1)
Quarter: 2021Q4

REPORT INFORMATION
  Report Type: Other
  Country: CN (occurrence: None)
  Receive Date: 20211105
  Receipt Date: 20211105
  Transmission Date: 20220303
  Serious: Yes (Other)
  Sender: FDA-Public Use
  Company Number: CN-ROCHE-2946842

PATIENT

DRUGS (4)
  1. BEVACIZUMAB [Suspect]
     Active Substance: BEVACIZUMAB
     Indication: Non-small cell lung cancer
     Route: 042
  2. PEMETREXED [Suspect]
     Active Substance: PEMETREXED
     Indication: Non-small cell lung cancer
     Route: 042
  3. CISPLATIN [Suspect]
     Active Substance: CISPLATIN
     Indication: Non-small cell lung cancer
     Route: 042
  4. CARBOPLATIN [Suspect]
     Active Substance: CARBOPLATIN
     Indication: Non-small cell lung cancer
     Dosage: AREA UNDER THE CONCENTRATION TIME CURVE (AUC), 5 MG/ML PER MIN
     Route: 042

REACTIONS (18)
  - Leukopenia [Unknown]
  - Neutropenia [Unknown]
  - Anaemia [Unknown]
  - Fatigue [Unknown]
  - Thrombocytopenia [Unknown]
  - Transaminases increased [Unknown]
  - Pyrexia [Unknown]
  - Rash [Unknown]
  - Coagulopathy [Unknown]
  - Constipation [Unknown]
  - Nausea [Unknown]
  - Blood creatinine increased [Unknown]
  - Vomiting [Unknown]
  - Electrocardiogram abnormal [Unknown]
  - Proteinuria [Unknown]
  - Haemorrhage [Unknown]
  - Hypertension [Unknown]
  - Embolism [Unknown]
